FAERS Safety Report 13014271 (Version 3)
Quarter: 2018Q3

REPORT INFORMATION
  Report Type: Report from Study
  Country: BR (occurrence: BR)
  Receive Date: 20161209
  Receipt Date: 20180725
  Transmission Date: 20181010
  Serious: Yes (Other)
  Sender: FDA-Public Use
  Company Number: PHHY2016BR168242

PATIENT
  Sex: Female
  Weight: 72 kg

DRUGS (3)
  1. GILENYA [Suspect]
     Active Substance: FINGOLIMOD HYDROCHLORIDE
     Dosage: 0.5 MG, QD (NOT USED ON SUNDAYS)
     Route: 048
     Dates: start: 201805
  2. FLUOXETINA [Concomitant]
     Active Substance: FLUOXETINE HYDROCHLORIDE
     Indication: ANXIETY
     Dosage: 40 MG, QD
     Route: 065
     Dates: start: 2003
  3. GILENYA [Suspect]
     Active Substance: FINGOLIMOD HYDROCHLORIDE
     Indication: MULTIPLE SCLEROSIS
     Dosage: 0.5 MG, QW5 (EXCEPT ON WEDNESDAY AND SATURDAYS)
     Route: 048
     Dates: start: 201406

REACTIONS (2)
  - Prescribed underdose [Unknown]
  - Immunodeficiency [Recovering/Resolving]
